FAERS Safety Report 5220098-0 (Version None)
Quarter: 2006Q4

REPORT INFORMATION
  Report Type: 
  Country: None (occurrence: None)
  Receive Date: 20061121
  Receipt Date: 20060801
  Transmission Date: 20070319
  Serious: No
  Sender: FDA-Public Use
  Company Number: TPA2006A01249

PATIENT
  Age: 45 Year
  Sex: Male
  Weight: 81.6475 kg

DRUGS (4)
  1. ROZEREM [Suspect]
     Indication: MIDDLE INSOMNIA
     Dosage: 8 MG, HS, PER ORAL
     Route: 048
     Dates: start: 20060722, end: 20060723
  2. CYMBALTA [Concomitant]
  3. LUNESTA (ALL OTHER THERAPEUTIC PRODUCTS) [Concomitant]
  4. TRAZODONE HCL [Concomitant]

REACTIONS (3)
  - FATIGUE [None]
  - INITIAL INSOMNIA [None]
  - POOR QUALITY SLEEP [None]
